FAERS Safety Report 23717006 (Version 1)
Quarter: 2024Q2

REPORT INFORMATION
  Report Type: Spontaneous
  Country: FR (occurrence: FR)
  Receive Date: 20240408
  Receipt Date: 20240408
  Transmission Date: 20240715
  Serious: Yes (Life-Threatening, Hospitalization, Other)
  Sender: FDA-Public Use
  Company Number: FR-ROCHE-2031433

PATIENT
  Age: 75 Year
  Sex: Male
  Weight: 88 kg

DRUGS (28)
  1. MIRTAZAPINE [Suspect]
     Active Substance: MIRTAZAPINE
     Indication: Depressive symptom
     Dosage: 15 MILLIGRAM, QD
     Route: 048
     Dates: start: 20170910
  2. VALIUM [Suspect]
     Active Substance: DIAZEPAM
     Indication: Depressive symptom
     Dosage: 30 MILLIGRAM, QD
     Route: 048
     Dates: start: 20170101, end: 20170927
  3. VALIUM [Suspect]
     Active Substance: DIAZEPAM
     Dosage: 3 DOSAGE FORM, QD
     Route: 048
     Dates: start: 20170101, end: 20170927
  4. POTASSIUM CHLORIDE [Suspect]
     Active Substance: POTASSIUM CHLORIDE
     Indication: Hypokalaemia
     Dosage: 6 DOSAGE FORM, QD
     Route: 048
     Dates: start: 20170824, end: 20171003
  5. LEVOFLOXACIN [Suspect]
     Active Substance: LEVOFLOXACIN
     Indication: Lung disorder
     Dosage: 250 MILLIGRAM, QD (2X PER DAY (BID))
     Route: 048
     Dates: start: 20170905, end: 20170919
  6. LEVOFLOXACIN [Suspect]
     Active Substance: LEVOFLOXACIN
     Dosage: 500 MILLIGRAM, QD
     Route: 048
     Dates: start: 20170905, end: 20170919
  7. BISOPROLOL FUMARATE [Suspect]
     Active Substance: BISOPROLOL FUMARATE
     Indication: Hypertension
     Dosage: 1.25 MILLIGRAM, QD
     Route: 048
     Dates: start: 20171006
  8. ESCITALOPRAM OXALATE [Suspect]
     Active Substance: ESCITALOPRAM OXALATE
     Indication: Depressive symptom
     Dosage: 1 DOSAGE FORM, QD
     Route: 048
     Dates: start: 20170101, end: 20170910
  9. METFORMIN [Suspect]
     Active Substance: METFORMIN HYDROCHLORIDE
     Indication: Diabetes mellitus
     Dosage: 1000 MILLIGRAM, QD
     Route: 048
     Dates: start: 20170824, end: 20171025
  10. ALPRAZOLAM [Suspect]
     Active Substance: ALPRAZOLAM
     Indication: Depressive symptom
     Dosage: 0.25 MILLIGRAM, TID
     Route: 048
     Dates: start: 20170928
  11. AMLODIPINE [Suspect]
     Active Substance: AMLODIPINE BESYLATE
     Indication: Hypertension
     Dosage: 10 MILLIGRAM, QD
     Route: 048
     Dates: start: 20170825, end: 20170927
  12. PANTOPRAZOLE [Suspect]
     Active Substance: PANTOPRAZOLE
     Indication: Gastrooesophageal reflux disease
     Dosage: 20 MILLIGRAM, QD
     Route: 048
     Dates: start: 20150101, end: 20171025
  13. DIAZEPAM [Suspect]
     Active Substance: DIAZEPAM
     Indication: Depressive symptom
     Dosage: 30 MILLIGRAM, QD
     Route: 048
     Dates: start: 20170101, end: 20170927
  14. AMLODIPINE BESYLATE [Suspect]
     Active Substance: AMLODIPINE BESYLATE
     Indication: Hypertension
     Dosage: 10 MILLIGRAM, QD
     Route: 048
     Dates: start: 20170825, end: 20170927
  15. FUROSEMIDE [Suspect]
     Active Substance: FUROSEMIDE
     Indication: Hypertension
     Dosage: 60 MILLIGRAM, QD
     Route: 048
     Dates: start: 20170825, end: 20171003
  16. XARELTO [Suspect]
     Active Substance: RIVAROXABAN
     Indication: Atrial fibrillation
     Dosage: 20 MILLIGRAM, ONCE DAILY (QD)
     Route: 048
     Dates: start: 20170824, end: 20171025
  17. DAFALGAN [Suspect]
     Active Substance: ACETAMINOPHEN
     Indication: Pain
     Dosage: 1000MG, 3X/DAY (TID)
     Route: 048
     Dates: start: 20171009
  18. DAFALGAN [Suspect]
     Active Substance: ACETAMINOPHEN
     Dosage: 1000MG, 3X/DAY (TID)
     Route: 048
     Dates: start: 20171019
  19. TERBUTALINE SULFATE [Suspect]
     Active Substance: TERBUTALINE SULFATE
     Indication: Lung disorder
     Dosage: 1 DOSAGE FORM, QD
     Route: 055
     Dates: start: 20170914, end: 20170921
  20. IRBESARTAN [Suspect]
     Active Substance: IRBESARTAN
     Indication: Hypertension
     Dosage: 300 MILLIGRAM, QD
     Route: 048
     Dates: start: 20150101, end: 20171006
  21. NEFOPAM HYDROCHLORIDE [Suspect]
     Active Substance: NEFOPAM HYDROCHLORIDE
     Indication: Pain
     Dosage: 3 DOSAGE FORM, QD (1 DF, TID)
     Route: 048
  22. NEFOPAM HYDROCHLORIDE [Suspect]
     Active Substance: NEFOPAM HYDROCHLORIDE
     Dosage: 3 MICROGRAM, QD
     Route: 048
  23. TERBUTALINE [Suspect]
     Active Substance: TERBUTALINE
     Indication: Lung disorder
     Dosage: 1 DOSAGE FORM, QD
     Dates: start: 20170921
  24. TERBUTALINE [Suspect]
     Active Substance: TERBUTALINE
     Indication: Lung disorder
  25. BISOPROLOL [Suspect]
     Active Substance: BISOPROLOL\BISOPROLOL FUMARATE
     Indication: Hypertension
     Dosage: 1.25 MILLIGRAM, QD
     Route: 048
     Dates: start: 20171006
  26. METFORMIN [Suspect]
     Active Substance: METFORMIN HYDROCHLORIDE
     Indication: Diabetes mellitus
     Dosage: 500 MILLIGRAM
     Route: 048
     Dates: start: 20170824, end: 20171025
  27. COLCHICINE [Suspect]
     Active Substance: COLCHICINE
     Indication: Gout
     Dosage: 1 MILLIGRAM, QD
     Route: 048
     Dates: start: 20170914, end: 20170921
  28. COLCHICINE [Suspect]
     Active Substance: COLCHICINE
     Dosage: 1 DOSAGE FORM, QD
     Route: 048
     Dates: start: 20170914, end: 20170921

REACTIONS (1)
  - Agranulocytosis [Recovered/Resolved]

NARRATIVE: CASE EVENT DATE: 20171024
